FAERS Safety Report 16930232 (Version 2)
Quarter: 2019Q4

REPORT INFORMATION
  Report Type: Spontaneous
  Country: US (occurrence: US)
  Receive Date: 20191017
  Receipt Date: 20191203
  Transmission Date: 20200122
  Serious: No
  Sender: FDA-Public Use
  Company Number: US-ALKERMES INC.-ALK-2019-005360

PATIENT
  Age: 51 Year
  Sex: Male

DRUGS (2)
  1. VIVITROL [Suspect]
     Active Substance: NALTREXONE
     Indication: ALCOHOLISM
     Dosage: 380 MG, QMO
     Route: 030
     Dates: start: 20191007, end: 20191007
  2. VIVITROL [Suspect]
     Active Substance: NALTREXONE
     Dosage: 380 MG, QMO
     Route: 030
     Dates: start: 20190809, end: 20190809

REACTIONS (9)
  - Insomnia [Recovered/Resolved]
  - Hallucination, visual [Recovered/Resolved]
  - Blood potassium decreased [Recovered/Resolved]
  - Mental status changes [Recovered/Resolved]
  - Hallucination, auditory [Recovered/Resolved]
  - Abnormal dreams [Recovered/Resolved]
  - Sleep deficit [Recovered/Resolved]
  - Blood magnesium decreased [Recovered/Resolved]
  - Blood pressure abnormal [Recovered/Resolved]

NARRATIVE: CASE EVENT DATE: 2019
